FAERS Safety Report 25147128 (Version 2)
Quarter: 2025Q3

REPORT INFORMATION
  Report Type: Spontaneous
  Country: CH (occurrence: CH)
  Receive Date: 20250401
  Receipt Date: 20250809
  Transmission Date: 20251021
  Serious: Yes (Other)
  Sender: ALEXION PHARMACEUTICALS
  Company Number: CH-ASTRAZENECA-202503GLO027549CH

PATIENT
  Age: 95 Year
  Sex: Female
  Weight: 83.2 kg

DRUGS (15)
  1. QUETIAPINE FUMARATE [Suspect]
     Active Substance: QUETIAPINE FUMARATE
     Indication: Bipolar disorder
     Dosage: 10 MILLIGRAM, Q12H SEQUASE FILM-COATED TABLET 100 MG P.O. 1-2-1-0 SINCE 09/06/2023
     Route: 065
     Dates: start: 20230609, end: 20241203
  2. QUETIAPINE FUMARATE [Suspect]
     Active Substance: QUETIAPINE FUMARATE
     Route: 065
     Dates: start: 20230609, end: 20241203
  3. QUETIAPINE FUMARATE [Suspect]
     Active Substance: QUETIAPINE FUMARATE
     Route: 065
     Dates: start: 20241118, end: 20241203
  4. QUETIAPINE FUMARATE [Suspect]
     Active Substance: QUETIAPINE FUMARATE
     Route: 065
  5. QUETIAPINE FUMARATE [Suspect]
     Active Substance: QUETIAPINE FUMARATE
     Dosage: 50 MILLIGRAM, Q12H
     Route: 065
     Dates: start: 20241204
  6. QUETIAPINE FUMARATE [Suspect]
     Active Substance: QUETIAPINE FUMARATE
     Route: 065
     Dates: start: 20230622, end: 20241203
  7. QUETIAPINE FUMARATE [Suspect]
     Active Substance: QUETIAPINE FUMARATE
     Dosage: 275 MILLIGRAM, QD DISCHARGE ON DECEMBER 9, 2024: QUETIAPINE TOTAL 275 MG/DAY QUETIAPINE 50 MG DELAYED-RELEASE ORALLY 0-0-0-2
     Route: 065
     Dates: start: 20241209
  8. QUETIAPINE FUMARATE [Suspect]
     Active Substance: QUETIAPINE FUMARATE
     Dosage: 100 MILLIGRAM, QD
     Route: 065
  9. QUETIAPINE FUMARATE [Suspect]
     Active Substance: QUETIAPINE FUMARATE
     Dosage: 100 MILLIGRAM, QD DISCHARGE ON DECEMBER 9, 2024: QUETIAPINE TOTAL 275 MG/DAY QUETIAPINE 50 MG DELAYED-RELEASE ORALLY 0-0-0-2
     Route: 065
  10. QUETIAPINE FUMARATE [Suspect]
     Active Substance: QUETIAPINE FUMARATE
     Dosage: INCREASE IN THE DOSE OF QUETIAPINE FROM 600 MG/D TO 625 MG/D SINCE 18 NOVEMBER 2025
     Route: 065
  11. QUETIAPINE FUMARATE [Suspect]
     Active Substance: QUETIAPINE FUMARATE
     Dosage: INCREASE IN THE DOSE OF QUETIAPINE FROM 600 MG/D TO 625 MG/D SINCE 18 NOVEMBER 2025
     Route: 065
     Dates: start: 20241118
  12. CLARITHROMYCIN [Concomitant]
     Active Substance: CLARITHROMYCIN
     Indication: Pneumonia
     Dates: start: 20241203, end: 20241204
  13. CLARITHROMYCIN [Concomitant]
     Active Substance: CLARITHROMYCIN
     Indication: Antibiotic therapy
  14. AMOXICILLIN\CLAVULANATE POTASSIUM [Concomitant]
     Active Substance: AMOXICILLIN\CLAVULANATE POTASSIUM
     Indication: Pneumonia
     Dates: start: 20241202, end: 20241209
  15. AMOXICILLIN\CLAVULANATE POTASSIUM [Concomitant]
     Active Substance: AMOXICILLIN\CLAVULANATE POTASSIUM
     Indication: Antibiotic therapy

REACTIONS (4)
  - Long QT syndrome [Recovering/Resolving]
  - Pneumonia [Unknown]
  - Cardiac failure acute [Unknown]
  - Respiratory failure [Unknown]

NARRATIVE: CASE EVENT DATE: 20241202
